FAERS Safety Report 4979170-2 (Version None)
Quarter: 2006Q2

REPORT INFORMATION
  Report Type: 
  Country: None (occurrence: None)
  Receive Date: 20060418
  Receipt Date: 20060405
  Transmission Date: 20061013
  Serious: Yes (Hospitalization)
  Sender: FDA-Public Use
  Company Number: 2006-03-1255

PATIENT
  Age: 70 Year
  Sex: Male

DRUGS (7)
  1. TEMODAL [Suspect]
     Indication: GLIOBLASTOMA MULTIFORME
     Dosage: 75 MG/M2 ORAL
     Route: 048
     Dates: start: 20050910, end: 20051014
  2. BACTRIM [Suspect]
     Indication: ANTIBIOTIC PROPHYLAXIS
     Dosage: ORAL
     Route: 048
     Dates: start: 20050915, end: 20051028
  3. RADIATION THERAPY [Suspect]
     Indication: BRAIN NEOPLASM
     Dosage: X-RAY THERAPY
     Dates: start: 20050916, end: 20051028
  4. DEPAKINE CHRONO (SODIUM VALPROATE) [Concomitant]
  5. ZESTRIL [Concomitant]
  6. MEDROL [Concomitant]
  7. ZANTAC [Concomitant]

REACTIONS (5)
  - APLASTIC ANAEMIA [None]
  - DRUG INTERACTION [None]
  - HISTIOCYTOSIS HAEMATOPHAGIC [None]
  - PANCYTOPENIA [None]
  - PNEUMONIA CHLAMYDIAL [None]
